FAERS Safety Report 20333232 (Version 7)
Quarter: 2022Q2

REPORT INFORMATION
  Report Type: Report from Study
  Country: CN (occurrence: CN)
  Receive Date: 20220113
  Receipt Date: 20220621
  Transmission Date: 20220720
  Serious: Yes (Hospitalization)
  Sender: FDA-Public Use
  Company Number: CN-NOVARTISPH-NVSC2022CN003487

PATIENT
  Age: 57 Year
  Sex: Female
  Weight: 54.5 kg

DRUGS (7)
  1. ALPELISIB [Suspect]
     Active Substance: ALPELISIB
     Indication: Breast cancer
     Dosage: 300 MG
     Route: 048
     Dates: start: 20210607, end: 20220105
  2. ALPELISIB [Suspect]
     Active Substance: ALPELISIB
     Dosage: 250 MG, QD
     Route: 048
     Dates: start: 20220112
  3. ALPELISIB [Suspect]
     Active Substance: ALPELISIB
     Indication: Breast cancer
     Dosage: NO TREATMENT
     Route: 065
  4. INVESTIGATIONAL PRODUCT [Suspect]
     Active Substance: INVESTIGATIONAL PRODUCT
     Indication: Breast cancer
     Dosage: NO TREATMENT
     Route: 065
  5. PLACEBO [Suspect]
     Active Substance: UNSPECIFIED INGREDIENT
     Indication: Breast cancer
     Dosage: NO TREATMENT
     Route: 065
  6. FULVESTRANT [Concomitant]
     Active Substance: FULVESTRANT
     Indication: Breast cancer
     Dosage: 0 MG, Q4W
     Route: 065
     Dates: start: 20210607, end: 20210607
  7. INSULIN DEGLUDEC [Concomitant]
     Active Substance: INSULIN DEGLUDEC
     Indication: Hyperglycaemia
     Dosage: UNK
     Route: 065
     Dates: start: 20210915

REACTIONS (1)
  - Upper respiratory tract infection [Recovered/Resolved]

NARRATIVE: CASE EVENT DATE: 20220106
